FAERS Safety Report 8609171-4 (Version None)
Quarter: 2012Q3

REPORT INFORMATION
  Report Type: 
  Country: None (occurrence: None)
  Receive Date: 20120821
  Receipt Date: 20120627
  Transmission Date: 20120928
  Serious: Yes (Hospitalization, Other)
  Sender: FDA-Public Use
  Company Number: US-009507513-2012SP036389

PATIENT

DRUGS (3)
  1. VICTRELIS [Suspect]
     Indication: HEPATITIS C
     Dosage: UNK
     Route: 065
     Dates: start: 20111103, end: 20120612
  2. REBETOL [Suspect]
     Dosage: UNK
     Dates: start: 20110921
  3. PEGINTERFERON ALFA-2B [Suspect]
     Indication: HEPATITIS C
     Dosage: UNK
     Dates: start: 20110921

REACTIONS (4)
  - CHEST PAIN [None]
  - TRANSIENT ISCHAEMIC ATTACK [None]
  - HYPOAESTHESIA [None]
  - STRESS [None]
